APPROVED DRUG PRODUCT: TIZANIDINE HYDROCHLORIDE
Active Ingredient: TIZANIDINE HYDROCHLORIDE
Strength: EQ 2MG BASE
Dosage Form/Route: TABLET;ORAL
Application: A076280 | Product #001
Applicant: CHARTWELL RX SCIENCES LLC
Approved: Nov 26, 2002 | RLD: No | RS: No | Type: DISCN